FAERS Safety Report 4654507-2 (Version None)
Quarter: 2005Q2

REPORT INFORMATION
  Report Type: 
  Country: None (occurrence: None)
  Receive Date: 20050504
  Receipt Date: 20050504
  Transmission Date: 20051028
  Serious: Yes (Hospitalization)
  Sender: FDA-Public Use
  Company Number: None

PATIENT
  Sex: Female
  Weight: 61.2356 kg

DRUGS (4)
  1. PAXIL CR [Suspect]
     Indication: ANXIETY
     Dosage: 12.5 MG ORAL
     Route: 048
     Dates: start: 20040409, end: 20050416
  2. PAXIL CR [Suspect]
     Indication: DEPRESSION
     Dosage: 12.5 MG ORAL
     Route: 048
     Dates: start: 20040409, end: 20050416
  3. ALBUTEROL [Concomitant]
  4. LEXAPRO [Concomitant]

REACTIONS (6)
  - DYSPNOEA [None]
  - DYSTONIA [None]
  - GAZE PALSY [None]
  - MUSCLE SPASMS [None]
  - NECK INJURY [None]
  - PANIC ATTACK [None]
